FAERS Safety Report 18954780 (Version 2)
Quarter: 2021Q2

REPORT INFORMATION
  Report Type: Spontaneous
  Country: JP (occurrence: JP)
  Receive Date: 20210301
  Receipt Date: 20210416
  Transmission Date: 20210717
  Serious: Yes (Hospitalization, Disabling, Other)
  Sender: FDA-Public Use
  Company Number: JP-BAYER-2021-082610

PATIENT
  Age: 65 Year
  Sex: Male

DRUGS (1)
  1. STIVARGA [Suspect]
     Active Substance: REGORAFENIB
     Indication: GASTROINTESTINAL STROMAL TUMOUR
     Dosage: DAILY DOSE 160 MG, 3 WEEKS ON/ 1 WEEK OFF
     Dates: start: 202002

REACTIONS (5)
  - Muscular weakness [Recovered/Resolved]
  - Dysarthria [None]
  - Cerebral infarction [Recovered/Resolved]
  - Cerebral infarction [None]
  - Hemiplegia [None]

NARRATIVE: CASE EVENT DATE: 20210224
